FAERS Safety Report 7496273-1 (Version None)
Quarter: 2011Q2

REPORT INFORMATION
  Report Type: 
  Country: None (occurrence: None)
  Receive Date: 20110523
  Receipt Date: 20110516
  Transmission Date: 20111010
  Serious: Yes (Hospitalization)
  Sender: FDA-Public Use
  Company Number: FR-PFIZER INC-2011104062

PATIENT
  Age: 36 Year
  Sex: Male

DRUGS (3)
  1. PREDNISONE [Concomitant]
  2. SIROLIMUS [Suspect]
     Dosage: UNK
  3. CELLCEPT [Suspect]
     Dosage: 2 G, 1X/DAY
     Route: 048
     Dates: start: 20100823, end: 20110109

REACTIONS (2)
  - DIARRHOEA [None]
  - DECREASED APPETITE [None]
